FAERS Safety Report 5584636-0 (Version None)
Quarter: 2008Q1

REPORT INFORMATION
  Report Type: 
  Country: None (occurrence: None)
  Receive Date: 20080108
  Receipt Date: 20071227
  Transmission Date: 20080703
  Serious: Yes (Life-Threatening, Hospitalization, Other)
  Sender: FDA-Public Use
  Company Number: JP-PFIZER INC-2007091376

PATIENT
  Sex: Female
  Weight: 37 kg

DRUGS (8)
  1. CABERGOLINE [Suspect]
     Indication: PARKINSON'S DISEASE
     Route: 048
  2. MENESIT [Concomitant]
     Indication: PARKINSON'S DISEASE
     Dosage: DAILY DOSE:400MG
  3. SYMMETREL [Concomitant]
     Indication: PARKINSON'S DISEASE
     Dosage: DAILY DOSE:150MG
  4. AMOBAN [Concomitant]
     Indication: INSOMNIA
     Dosage: DAILY DOSE:7.5MG
  5. MAGNESIUM OXIDE [Concomitant]
     Indication: CONSTIPATION
     Dosage: DAILY DOSE:2GRAM
  6. MARZULENE S [Concomitant]
     Indication: GASTRITIS
     Dosage: DAILY DOSE:5GRAM
  7. DEPAS [Concomitant]
     Indication: NEUROSIS
     Dosage: DAILY DOSE:1.5MG
  8. BUP-4 [Concomitant]

REACTIONS (3)
  - CARDIAC FAILURE [None]
  - CARDIAC VALVE DISEASE [None]
  - INTERSTITIAL LUNG DISEASE [None]
